FAERS Safety Report 8083545-5 (Version None)
Quarter: 2012Q1

REPORT INFORMATION
  Report Type: 
  Country: None (occurrence: None)
  Receive Date: 20120127
  Receipt Date: 20110118
  Transmission Date: 20120608
  Serious: No
  Sender: FDA-Public Use
  Company Number: US-ABBOTT-11P-163-0698498-00

PATIENT
  Sex: Female
  Weight: 49.94 kg

DRUGS (4)
  1. ASACOL [Concomitant]
     Indication: CROHN'S DISEASE
  2. ZITHROMAX [Suspect]
     Dosage: 250 MG DAILY
     Dates: start: 20110101, end: 20110101
  3. HUMIRA [Suspect]
     Indication: CROHN'S DISEASE
     Dosage: DRUG HELD FOR 2 WEEKS
     Dates: start: 20100101
  4. ZITHROMAX [Suspect]
     Indication: PNEUMONIA
     Dates: start: 20110101, end: 20110101

REACTIONS (3)
  - PNEUMONIA [None]
  - PSORIASIS [None]
  - FATIGUE [None]
